FAERS Safety Report 4413994-5 (Version None)
Quarter: 2004Q3

REPORT INFORMATION
  Report Type: 
  Country: None (occurrence: None)
  Receive Date: 20040728
  Receipt Date: 20040715
  Transmission Date: 20050211
  Serious: Yes (Other)
  Sender: FDA-Public Use
  Company Number: GB-JNJFOC-20040704216

PATIENT
  Age: 73 Year
  Sex: Female

DRUGS (2)
  1. DURAGESIC [Suspect]
     Indication: CANCER PAIN
     Dosage: 75 UG/HR, TRANSDERMAL
     Route: 062
  2. CODEINE [Concomitant]

REACTIONS (3)
  - BACTERIAL INFECTION [None]
  - CENTRAL LINE INFECTION [None]
  - LOSS OF CONSCIOUSNESS [None]
